FAERS Safety Report 21459761 (Version 7)
Quarter: 2023Q1

REPORT INFORMATION
  Report Type: Report from Study
  Country: US (occurrence: US)
  Receive Date: 20221014
  Receipt Date: 20230210
  Transmission Date: 20230418
  Serious: Yes (Hospitalization, Other)
  Sender: FDA-Public Use
  Company Number: US-HORIZON THERAPEUTICS-HZN-2022-006392

PATIENT

DRUGS (1)
  1. KRYSTEXXA [Suspect]
     Active Substance: PEGLOTICASE
     Indication: Product used for unknown indication
     Dosage: FIRST INFUSION
     Route: 042
     Dates: start: 20220818

REACTIONS (15)
  - Cerebrovascular accident [Unknown]
  - Cystitis [Unknown]
  - Frequent bowel movements [Recovering/Resolving]
  - Gout [Unknown]
  - Hallucination [Unknown]
  - Rectal haemorrhage [Unknown]
  - Haemorrhoids [Unknown]
  - Malaise [Unknown]
  - Eye pruritus [Unknown]
  - Pain in extremity [Unknown]
  - Skin discolouration [Unknown]
  - Skin weeping [Unknown]
  - Back pain [Not Recovered/Not Resolved]
  - Skin disorder [Unknown]
  - Product dose omission issue [Unknown]

NARRATIVE: CASE EVENT DATE: 20220101
